FAERS Safety Report 6299179-9 (Version None)
Quarter: 2009Q3

REPORT INFORMATION
  Report Type: 
  Country: None (occurrence: None)
  Receive Date: 20090806
  Receipt Date: 20090728
  Transmission Date: 20100115
  Serious: Yes (Hospitalization)
  Sender: FDA-Public Use
  Company Number: US-JNJFOC-20090504954

PATIENT
  Sex: Female
  Weight: 75.3 kg

DRUGS (10)
  1. REMICADE [Suspect]
     Route: 042
  2. REMICADE [Suspect]
     Indication: RHEUMATOID ARTHRITIS
     Route: 042
  3. METHOTREXATE [Concomitant]
  4. METHOTREXATE [Concomitant]
     Indication: RHEUMATOID ARTHRITIS
  5. SULFASALAZINE [Concomitant]
     Indication: RHEUMATOID ARTHRITIS
  6. LEVOTHYROXINE SODIUM [Concomitant]
     Indication: HYPOTHYROIDISM
     Dosage: DAILY DOSE: 75 MCG
  7. ALENDRONATE SODIUM [Concomitant]
     Indication: OSTEOPENIA
  8. ZOLOFT [Concomitant]
  9. BENADRYL [Concomitant]
  10. HYDROCODONE [Concomitant]

REACTIONS (7)
  - ATAXIA [None]
  - DIZZINESS [None]
  - FACIAL PALSY [None]
  - HEADACHE [None]
  - HERPES ZOSTER DISSEMINATED [None]
  - NUCLEAR MAGNETIC RESONANCE IMAGING BRAIN ABNORMAL [None]
  - VOMITING [None]
